FAERS Safety Report 8127720-X (Version None)
Quarter: 2012Q1

REPORT INFORMATION
  Report Type: 
  Country: None (occurrence: None)
  Receive Date: 20120210
  Receipt Date: 20120201
  Transmission Date: 20120608
  Serious: Yes (Hospitalization)
  Sender: FDA-Public Use
  Company Number: DE-ABBOTT-12P-062-0900527-01

PATIENT
  Sex: Male

DRUGS (4)
  1. HUMIRA [Suspect]
     Dosage: WEEK 2
     Route: 058
     Dates: end: 20080513
  2. REMICADE [Concomitant]
     Indication: ILEITIS
  3. HUMIRA [Suspect]
     Indication: CROHN'S DISEASE
     Dosage: BASELINE
     Route: 058
     Dates: start: 20080415, end: 20080415
  4. REMICADE [Concomitant]
     Indication: ILEAL STENOSIS
     Dosage: 300MG WK 0, 4, 8 THEN EVERY 8 WKS
     Dates: start: 20090526, end: 20090908

REACTIONS (2)
  - MALNUTRITION [None]
  - APHTHOUS STOMATITIS [None]
